FAERS Safety Report 10511215 (Version 1)
Quarter: 2014Q4

REPORT INFORMATION
  Report Type: Spontaneous
  Country: CH (occurrence: None)
  Receive Date: 20141008
  Receipt Date: 20141008
  Transmission Date: 20150528
  Serious: Yes (Hospitalization)
  Sender: FDA-Public Use
  Company Number: INT_00439_2014

PATIENT
  Age: 47 Year
  Sex: Male

DRUGS (3)
  1. ETOPOSIDE (ETOPOSIDE) [Suspect]
     Active Substance: ETOPOSIDE
     Indication: TESTICULAR GERM CELL CANCER
     Dosage: AT LEAST 2 FULL DOSE GIVEN, 2 CYCLES
  2. BLEOMYCIN [Suspect]
     Active Substance: BLEOMYCIN SULFATE
     Indication: TESTICULAR GERM CELL CANCER
     Dosage: AT LEAST FOUR FULL DOSES, ONE ADDITIONAL ADMINISTRATION, 2 CYCLES
  3. CISPLATIN (CISPLATIN) (HQ SPECIALTY) [Suspect]
     Active Substance: CISPLATIN
     Indication: TESTICULAR GERM CELL CANCER
     Dosage: AT LEAST 2 FULL DOSE GIVEN, 2 CYCLES

REACTIONS (5)
  - Nausea [None]
  - Dehydration [None]
  - Cerebral venous thrombosis [None]
  - Asthenia [None]
  - Decreased appetite [None]
